FAERS Safety Report 9847527 (Version 1)
Quarter: 2014Q1

REPORT INFORMATION
  Report Type: Report from Study
  Country: US (occurrence: US)
  Receive Date: 20140128
  Receipt Date: 20140128
  Transmission Date: 20141002
  Serious: Yes (Hospitalization, Other)
  Sender: FDA-Public Use
  Company Number: US-ROCHE-1336987

PATIENT
  Age: 48 Year
  Sex: Female
  Weight: 87.17 kg

DRUGS (6)
  1. HERCEPTIN [Suspect]
     Indication: BREAST CANCER
     Route: 042
     Dates: start: 20131101
  2. PERJETA [Suspect]
     Indication: BREAST CANCER
     Route: 042
     Dates: start: 20131101
  3. TAXOTERE [Concomitant]
     Indication: BREAST CANCER
     Route: 042
     Dates: start: 20131101
  4. PEPCID [Concomitant]
     Route: 042
     Dates: start: 20131101
  5. CARBOPLATIN [Concomitant]
     Indication: BREAST CANCER
     Route: 042
     Dates: start: 20131101
  6. BENADRYL (UNITED STATES) [Concomitant]
     Route: 042
     Dates: start: 20131101

REACTIONS (3)
  - Clostridium difficile colitis [Recovering/Resolving]
  - Weight decreased [Unknown]
  - Rash [Not Recovered/Not Resolved]
